FAERS Safety Report 7872166-2 (Version None)
Quarter: 2011Q4

REPORT INFORMATION
  Report Type: 
  Country: None (occurrence: None)
  Receive Date: 20111029
  Receipt Date: 20110315
  Transmission Date: 20120403
  Serious: No
  Sender: FDA-Public Use
  Company Number: US-AMGEN-USASP2011014374

PATIENT
  Sex: Male

DRUGS (1)
  1. ENBREL [Suspect]
     Indication: REITER'S SYNDROME
     Dates: start: 20070101

REACTIONS (7)
  - ARTHRALGIA [None]
  - INJECTION SITE PAIN [None]
  - JOINT SWELLING [None]
  - CELLULITIS [None]
  - MOBILITY DECREASED [None]
  - DIARRHOEA [None]
  - JOINT RANGE OF MOTION DECREASED [None]
